FAERS Safety Report 5146228-7 (Version None)
Quarter: 2006Q4

REPORT INFORMATION
  Report Type: 
  Country: None (occurrence: None)
  Receive Date: 20061106
  Receipt Date: 20061106
  Transmission Date: 20070319
  Serious: Yes (Hospitalization)
  Sender: FDA-Public Use
  Company Number: None

PATIENT
  Sex: Female
  Weight: 78.18 kg

DRUGS (5)
  1. MERCAPTOPURINE [Suspect]
     Dosage: 11449 MG
  2. METHOTREXATE [Suspect]
     Dosage: 380 MG
  3. DEXAMETHASONE TAB [Suspect]
     Dosage: 150 MG
  4. VINCRISTINE SULFATE [Suspect]
     Dosage: 6 MG
  5. BACTRIM [Concomitant]

REACTIONS (10)
  - ACTIVATED PARTIAL THROMBOPLASTIN TIME PROLONGED [None]
  - CHOLELITHIASIS [None]
  - DIARRHOEA [None]
  - HAEMOGLOBIN DECREASED [None]
  - HEPATOMEGALY [None]
  - PAIN [None]
  - PAIN OF SKIN [None]
  - PLATELET COUNT DECREASED [None]
  - PROTHROMBIN TIME PROLONGED [None]
  - SPLENOMEGALY [None]
